FAERS Safety Report 12180273 (Version 2)
Quarter: 2016Q2

REPORT INFORMATION
  Report Type: Report from Study
  Country: US (occurrence: US)
  Receive Date: 20160315
  Receipt Date: 20160503
  Transmission Date: 20160815
  Serious: Yes (Hospitalization, Other)
  Sender: FDA-Public Use
  Company Number: US-GILEAD-2016-0203363

PATIENT
  Age: 60 Year
  Sex: Male
  Weight: 165.99 kg

DRUGS (18)
  1. AMBRISENTAN [Suspect]
     Active Substance: AMBRISENTAN
     Indication: PULMONARY ARTERIAL HYPERTENSION
     Dosage: 10 MG, QD
     Route: 048
     Dates: start: 20140530, end: 20160218
  2. VENTOLIN HFA [Concomitant]
     Active Substance: ALBUTEROL SULFATE
  3. ZOLOFT [Concomitant]
     Active Substance: SERTRALINE HYDROCHLORIDE
  4. ADCIRCA [Suspect]
     Active Substance: TADALAFIL
     Indication: PULMONARY ARTERIAL HYPERTENSION
     Dosage: 20 MG, UNK
     Route: 048
     Dates: start: 20150713, end: 20160218
  5. PRILOSEC [Concomitant]
     Active Substance: OMEPRAZOLE MAGNESIUM
  6. ASPIRIN                            /00002701/ [Concomitant]
     Active Substance: ASPIRIN
  7. ERYTHROMYCIN. [Concomitant]
     Active Substance: ERYTHROMYCIN
  8. COUMADIN [Concomitant]
     Active Substance: WARFARIN SODIUM
  9. FUROSEMIDE. [Concomitant]
     Active Substance: FUROSEMIDE
  10. KLOR-CON [Concomitant]
     Active Substance: POTASSIUM CHLORIDE
  11. OXYGEN. [Concomitant]
     Active Substance: OXYGEN
  12. RANEXA [Concomitant]
     Active Substance: RANOLAZINE
  13. IBUPROFEN. [Concomitant]
     Active Substance: IBUPROFEN
  14. SYMBICORT [Concomitant]
     Active Substance: BUDESONIDE\FORMOTEROL FUMARATE DIHYDRATE
  15. RANITIDINE. [Concomitant]
     Active Substance: RANITIDINE
  16. TORSEMIDE. [Concomitant]
     Active Substance: TORSEMIDE
  17. METOPROLOL TARTRATE. [Concomitant]
     Active Substance: METOPROLOL TARTRATE
  18. CRESTOR [Concomitant]
     Active Substance: ROSUVASTATIN CALCIUM

REACTIONS (1)
  - Cardiac failure congestive [Recovered/Resolved]

NARRATIVE: CASE EVENT DATE: 20160218
